FAERS Safety Report 11103670 (Version 2)
Quarter: 2015Q3

REPORT INFORMATION
  Report Type: Report from Study
  Country: ID (occurrence: ID)
  Receive Date: 20150511
  Receipt Date: 20150811
  Transmission Date: 20151125
  Serious: Yes (Death, Life-Threatening, Hospitalization, Other)
  Sender: FDA-Public Use
  Company Number: ID-GLAXOSMITHKLINE-B0922958B

PATIENT
  Age: 78 Year
  Sex: Male
  Weight: 40 kg

DRUGS (11)
  1. PREDNISON [Concomitant]
     Active Substance: PREDNISONE
     Indication: CHRONIC OBSTRUCTIVE PULMONARY DISEASE
     Dosage: 5 MG, TID
     Route: 048
     Dates: start: 20130924, end: 20130925
  2. LEVOFLOXACIN. [Concomitant]
     Active Substance: LEVOFLOXACIN
     Indication: PNEUMONIA
     Dosage: 750 MG, OD
     Route: 042
     Dates: start: 20130913, end: 20130915
  3. RANITIDINE [Concomitant]
     Active Substance: RANITIDINE\RANITIDINE HYDROCHLORIDE
     Indication: DYSPEPSIA
     Dosage: 150 MG, Q12H
     Route: 042
     Dates: start: 20130913, end: 20130924
  4. COMBIVENT [Concomitant]
     Active Substance: ALBUTEROL SULFATE\IPRATROPIUM BROMIDE
     Indication: CHRONIC OBSTRUCTIVE PULMONARY DISEASE
     Dosage: 1 AMP, Q6H
     Route: 055
     Dates: start: 20130913, end: 20130924
  5. METILPREDNISOLONE [Concomitant]
     Active Substance: METHYLPREDNISOLONE
     Dosage: 125 MG, Q8H
     Route: 042
     Dates: start: 20130913, end: 20130915
  6. MICOSTATIN [Concomitant]
     Indication: CANDIDA INFECTION
     Dosage: 1 ML, TID
     Route: 048
     Dates: start: 20130916, end: 20130923
  7. MICOSTATIN [Concomitant]
     Indication: CANDIDA INFECTION
  8. FLUTICASONE FUROATE [Suspect]
     Active Substance: FLUTICASONE FUROATE
     Indication: CHRONIC OBSTRUCTIVE PULMONARY DISEASE
     Dosage: UNK
     Route: 055
     Dates: start: 20130924, end: 20131008
  9. MEROPENEM. [Concomitant]
     Active Substance: MEROPENEM
     Indication: PNEUMONIA
     Dosage: 1 G, QID
     Route: 042
     Dates: start: 20130915, end: 20130924
  10. METILPREDNISOLONE [Concomitant]
     Active Substance: METHYLPREDNISOLONE
     Indication: CHRONIC OBSTRUCTIVE PULMONARY DISEASE
     Dosage: 62.5 MG, Q8H
     Route: 042
     Dates: start: 20130916, end: 20130924
  11. CODEIN [Concomitant]
     Active Substance: CODEINE
     Indication: CHRONIC OBSTRUCTIVE PULMONARY DISEASE
     Dosage: 10 MG, TID
     Route: 048
     Dates: start: 20130913, end: 20131008

REACTIONS (3)
  - Respiratory failure [Fatal]
  - Pneumonia [Not Recovered/Not Resolved]
  - Septic shock [Fatal]

NARRATIVE: CASE EVENT DATE: 20131007
